FAERS Safety Report 4489397-4 (Version None)
Quarter: 2004Q4

REPORT INFORMATION
  Report Type: 
  Country: None (occurrence: None)
  Receive Date: 20041101
  Receipt Date: 20041020
  Transmission Date: 20050328
  Serious: Yes (Hospitalization)
  Sender: FDA-Public Use
  Company Number: US-ABBOTT-04P-163-0278225-00

PATIENT
  Sex: Male
  Weight: 65.376 kg

DRUGS (4)
  1. HUMIRA [Suspect]
     Indication: RHEUMATOID ARTHRITIS
     Route: 058
     Dates: start: 20020101, end: 20040517
  2. HUMIRA [Suspect]
     Dates: start: 20010101, end: 20020101
  3. ATORVASTATIN [Concomitant]
     Indication: BLOOD CHOLESTEROL INCREASED
     Dates: start: 20040401, end: 20040501
  4. M.V.I. [Concomitant]
     Indication: DRUG USE FOR UNKNOWN INDICATION
     Dates: end: 20040501

REACTIONS (8)
  - BLOOD MAGNESIUM DECREASED [None]
  - CHEST WALL PAIN [None]
  - COCCIDIOIDOMYCOSIS [None]
  - COUGH [None]
  - EMPHYSEMA [None]
  - FLATULENCE [None]
  - HYPOKALAEMIA [None]
  - PLEURAL EFFUSION [None]
